FAERS Safety Report 7842912-2 (Version None)
Quarter: 2011Q4

REPORT INFORMATION
  Report Type: 
  Country: None (occurrence: None)
  Receive Date: 20111025
  Receipt Date: 20100405
  Transmission Date: 20120403
  Serious: No
  Sender: FDA-Public Use
  Company Number: US-BAYER-201018906NA

PATIENT
  Sex: Male

DRUGS (4)
  1. LEVITRA [Suspect]
     Indication: ERECTILE DYSFUNCTION
     Dosage: 10 MG, Q1MON
     Route: 048
     Dates: start: 20090901
  2. SIMVASTATIN [Concomitant]
  3. ASPIRIN [Concomitant]
  4. ATENOLOL [Concomitant]

REACTIONS (2)
  - ERECTILE DYSFUNCTION [None]
  - BLOOD URINE PRESENT [None]
